FAERS Safety Report 8732616 (Version 2)
Quarter: 2015Q3

REPORT INFORMATION
  Report Type: Report from Study
  Country: US (occurrence: US)
  Receive Date: 20120820
  Receipt Date: 20150709
  Transmission Date: 20151125
  Serious: Yes (Hospitalization)
  Sender: FDA-Public Use
  Company Number: US-ROCHE-1101385

PATIENT
  Sex: Female

DRUGS (6)
  1. ACTIVASE [Suspect]
     Active Substance: ALTEPLASE
     Indication: MYOCARDIAL INFARCTION
     Route: 042
  2. HEPARIN [Concomitant]
     Active Substance: HEPARIN SODIUM
     Dosage: 1000 UNITS/ML
     Route: 042
  3. ASPIRIN. [Concomitant]
     Active Substance: ASPIRIN
     Dosage: BUFFERED
     Route: 048
  4. MORPHINE SULFATE. [Concomitant]
     Active Substance: MORPHINE SULFATE
  5. TRIDIL [Concomitant]
     Active Substance: NITROGLYCERIN
     Dosage: PER MINUTE
     Route: 065
  6. NIFEDIPINE. [Concomitant]
     Active Substance: NIFEDIPINE
     Route: 065

REACTIONS (3)
  - Pain [Unknown]
  - Nodal rhythm [Unknown]
  - Electrocardiogram ST segment elevation [Unknown]
